FAERS Safety Report 11757256 (Version 2)
Quarter: 2015Q4

REPORT INFORMATION
  Report Type: Report from Study
  Country: JP (occurrence: JP)
  Receive Date: 20151120
  Receipt Date: 20151124
  Transmission Date: 20160304
  Serious: Yes (Death, Hospitalization)
  Sender: FDA-Public Use
  Company Number: JP-ROCHE-1650250

PATIENT
  Age: 71 Year
  Sex: Male

DRUGS (2)
  1. CAPECITABINE. [Suspect]
     Active Substance: CAPECITABINE
     Indication: COLON CANCER
     Dosage: DOSAGE WAS UNCERTAIN. ?ONE COURSE
     Route: 048
     Dates: start: 20150914
  2. BEVACIZUMAB [Suspect]
     Active Substance: BEVACIZUMAB
     Indication: COLON CANCER
     Dosage: DOSAGE WAS UNCERTAIN. ?ONE COURSE
     Route: 041
     Dates: start: 20150914

REACTIONS (8)
  - Metastases to lung [Fatal]
  - Pyrexia [Unknown]
  - Disseminated intravascular coagulation [Fatal]
  - Metastases to liver [Fatal]
  - Anaemia [Not Recovered/Not Resolved]
  - Decreased appetite [Not Recovered/Not Resolved]
  - Malaise [Unknown]
  - Rectal cancer [Fatal]

NARRATIVE: CASE EVENT DATE: 201510
